FAERS Safety Report 20495767 (Version 1)
Quarter: 2022Q1

REPORT INFORMATION
  Report Type: Spontaneous
  Country: CH (occurrence: CH)
  Receive Date: 20220221
  Receipt Date: 20220221
  Transmission Date: 20220424
  Serious: Yes (Hospitalization)
  Sender: FDA-Public Use
  Company Number: CH-GUERBET-CH-20220010

PATIENT
  Sex: Female

DRUGS (1)
  1. DOTAREM [Suspect]
     Active Substance: GADOTERATE MEGLUMINE
     Indication: Magnetic resonance imaging
     Route: 042
     Dates: start: 202202, end: 202202

REACTIONS (1)
  - Dermatitis allergic [Unknown]

NARRATIVE: CASE EVENT DATE: 20220201
